FAERS Safety Report 18117191 (Version 1)
Quarter: 2020Q3

REPORT INFORMATION
  Report Type: Spontaneous
  Country: IT (occurrence: IT)
  Receive Date: 20200805
  Receipt Date: 20200805
  Transmission Date: 20201103
  Serious: Yes (Hospitalization, Other)
  Sender: FDA-Public Use
  Company Number: IT-AUROBINDO-AUR-APL-2020-037129

PATIENT
  Age: 69 Year
  Sex: Female
  Weight: 59 kg

DRUGS (1)
  1. BUPIVACAINE 5 MG/ML SOLUTION FOR INJECTION [Suspect]
     Active Substance: BUPIVACAINE
     Indication: SPINAL ANAESTHESIA
     Dosage: 2.5 MILLILITER, TOTAL
     Route: 008

REACTIONS (12)
  - Photophobia [Recovered/Resolved]
  - VIth nerve paralysis [Recovered/Resolved]
  - Pain in extremity [Recovered/Resolved]
  - Paralysis [Recovered/Resolved]
  - Spinal subarachnoid haemorrhage [Recovered/Resolved]
  - Hypoaesthesia [Recovered/Resolved]
  - Intracranial hypotension [Recovered/Resolved]
  - Nausea [Recovered/Resolved]
  - Dysuria [Recovered/Resolved]
  - Haemorrhage intracranial [Recovered/Resolved]
  - Vision blurred [Recovered/Resolved]
  - Headache [Recovered/Resolved]
